FAERS Safety Report 5166814-8 (Version None)
Quarter: 2006Q4

REPORT INFORMATION
  Report Type: 
  Country: None (occurrence: None)
  Receive Date: 20061207
  Receipt Date: 20020515
  Transmission Date: 20070319
  Serious: Yes (Hospitalization)
  Sender: FDA-Public Use
  Company Number: US-ROCHE-313496

PATIENT
  Age: 16 Year
  Sex: Male
  Weight: 70.3 kg

DRUGS (3)
  1. ACCUTANE [Suspect]
     Indication: ACNE
     Route: 048
     Dates: start: 19970115, end: 19980115
  2. NAPROSYN [Concomitant]
     Indication: MUSCLE STRAIN
     Dates: start: 20000901
  3. FLEXERIL [Concomitant]
     Indication: MUSCLE STRAIN
     Dates: start: 20000901

REACTIONS (53)
  - ABDOMINAL ABSCESS [None]
  - ABDOMINAL DISTENSION [None]
  - ABDOMINAL MASS [None]
  - ABDOMINAL PAIN [None]
  - ABSCESS INTESTINAL [None]
  - ANOREXIA [None]
  - ANXIETY [None]
  - BRONCHITIS ACUTE [None]
  - CANDIDIASIS [None]
  - CELLULITIS [None]
  - CHEST DISCOMFORT [None]
  - CHILLS [None]
  - CHROMATURIA [None]
  - CROHN'S DISEASE [None]
  - DECREASED APPETITE [None]
  - DEHYDRATION [None]
  - DEPRESSION [None]
  - DYSURIA [None]
  - EYE DISORDER [None]
  - FATIGUE [None]
  - FOREIGN BODY TRAUMA [None]
  - HEADACHE [None]
  - HEPATOCELLULAR DAMAGE [None]
  - HEPATOMEGALY [None]
  - ILEUS [None]
  - INFLAMMATORY BOWEL DISEASE [None]
  - INTESTINAL FISTULA [None]
  - INTESTINAL OBSTRUCTION [None]
  - INTESTINAL PERFORATION [None]
  - IRRITABLE BOWEL SYNDROME [None]
  - LYMPHADENOPATHY [None]
  - MALNUTRITION [None]
  - MYALGIA [None]
  - NAUSEA [None]
  - NIGHT SWEATS [None]
  - OLIGURIA [None]
  - PANCREATITIS ACUTE [None]
  - PELVIC PERITONEAL ADHESIONS [None]
  - PERSONALITY CHANGE [None]
  - PHARYNGOLARYNGEAL PAIN [None]
  - PRODUCTIVE COUGH [None]
  - PROTEIN URINE PRESENT [None]
  - PYREXIA [None]
  - SLEEP DISORDER [None]
  - SOMNOLENCE [None]
  - SPLENOMEGALY [None]
  - TONGUE DISORDER [None]
  - UPPER RESPIRATORY TRACT INFECTION [None]
  - VIRAL INFECTION [None]
  - WEIGHT DECREASED [None]
  - WEIGHT GAIN POOR [None]
  - WHITE BLOOD CELLS URINE [None]
  - WHITE BLOOD CELLS URINE POSITIVE [None]
